FAERS Safety Report 10972358 (Version 2)
Quarter: 2015Q2

REPORT INFORMATION
  Report Type: Spontaneous
  Country: US (occurrence: US)
  Receive Date: 20150331
  Receipt Date: 20150525
  Transmission Date: 20150821
  Serious: No
  Sender: FDA-Public Use
  Company Number: US-JNJFOC-20140108579

PATIENT
  Age: 29 Year
  Sex: Female
  Weight: 54.43 kg

DRUGS (3)
  1. RISPERDAL CONSTA [Suspect]
     Active Substance: RISPERIDONE
     Indication: PSYCHOTIC DISORDER
     Route: 030
     Dates: start: 2013, end: 20130913
  2. RISPERDAL CONSTA [Suspect]
     Active Substance: RISPERIDONE
     Indication: PSYCHOTIC DISORDER
     Route: 030
     Dates: start: 201304, end: 2013
  3. RISPERDAL CONSTA [Suspect]
     Active Substance: RISPERIDONE
     Indication: PSYCHOTIC DISORDER
     Route: 030

REACTIONS (16)
  - Memory impairment [Unknown]
  - Abnormal behaviour [Unknown]
  - Tremor [Recovered/Resolved]
  - Thinking abnormal [Unknown]
  - Weight increased [Unknown]
  - Communication disorder [Recovering/Resolving]
  - Cognitive disorder [Unknown]
  - Dizziness [Unknown]
  - Headache [Unknown]
  - Acne [Unknown]
  - Staring [Unknown]
  - Activities of daily living impaired [Unknown]
  - Confusional state [Unknown]
  - Feeling abnormal [Unknown]
  - Depression [Unknown]
  - Motor dysfunction [Unknown]

NARRATIVE: CASE EVENT DATE: 2013
